FAERS Safety Report 10594872 (Version 1)
Quarter: 2014Q4

REPORT INFORMATION
  Report Type: Spontaneous
  Country: US (occurrence: US)
  Receive Date: 20141120
  Receipt Date: 20141120
  Transmission Date: 20150529
  Serious: Yes (Hospitalization)
  Sender: FDA-Public Use
  Company Number: US-SUN PHARMACEUTICAL INDUSTRIES LTD-2014SUN02563

PATIENT

DRUGS (12)
  1. WARFARIN [Suspect]
     Active Substance: WARFARIN
     Indication: PRODUCT USED FOR UNKNOWN INDICATION
     Dosage: 1 MG/DAY,
     Route: 065
  2. LEVOTHYROXINE [Concomitant]
     Active Substance: LEVOTHYROXINE
  3. SULFAMETHOXAZOLE AND TRIMETHOPRIM [Interacting]
     Active Substance: SULFAMETHOXAZOLE\TRIMETHOPRIM
     Indication: ANTIFUNGAL PROPHYLAXIS
     Dosage: 160 MG/800 MG GIVEN EVERY OTHER DAY
     Route: 065
  4. OMEPRAZOLE. [Concomitant]
     Active Substance: OMEPRAZOLE
  5. CALCITRIOL. [Concomitant]
     Active Substance: CALCITRIOL
  6. CLONIDINE. [Concomitant]
     Active Substance: CLONIDINE
  7. ROSUVASTATIN [Concomitant]
     Active Substance: ROSUVASTATIN
  8. MYCOPHENOLATE [Concomitant]
     Active Substance: MYCOPHENOLIC ACID
  9. TACROLIMUS. [Concomitant]
     Active Substance: TACROLIMUS
  10. LISINOPRIL. [Concomitant]
     Active Substance: LISINOPRIL
  11. WARFARIN [Interacting]
     Active Substance: WARFARIN
     Dosage: 7.5 MG, ON DAY 4 OF ADMISSION
     Route: 065
  12. WARFARIN [Interacting]
     Active Substance: WARFARIN
     Dosage: 1-1.5 MG/DAY
     Route: 065

REACTIONS (2)
  - Drug interaction [Recovered/Resolved]
  - International normalised ratio increased [Recovered/Resolved]
